FAERS Safety Report 5816520-9 (Version None)
Quarter: 2008Q3

REPORT INFORMATION
  Report Type: 
  Country: None (occurrence: None)
  Receive Date: 20080717
  Receipt Date: 20080717
  Transmission Date: 20090109
  Serious: Yes (Life-Threatening, Hospitalization, Disabling, Other)
  Sender: FDA-Public Use
  Company Number: None

PATIENT
  Age: 53 Year
  Sex: Male
  Weight: 77.1115 kg

DRUGS (1)
  1. CYMBALTA [Suspect]
     Indication: DEPRESSION
     Dosage: 60MG 1X DAILY PO
     Route: 048
     Dates: start: 20080101, end: 20080716

REACTIONS (8)
  - ANTISOCIAL BEHAVIOUR [None]
  - CATHETER PLACEMENT [None]
  - DECREASED ACTIVITY [None]
  - FUNGAL INFECTION [None]
  - GENERAL PHYSICAL HEALTH DETERIORATION [None]
  - HYPOPHAGIA [None]
  - RESPIRATORY DISORDER [None]
  - SUICIDE ATTEMPT [None]
